FAERS Safety Report 15104389 (Version 1)
Quarter: 2018Q3

REPORT INFORMATION
  Report Type: Spontaneous
  Country: US (occurrence: US)
  Receive Date: 20180703
  Receipt Date: 20180703
  Transmission Date: 20181010
  Serious: Yes (Other)
  Sender: FDA-Public Use
  Company Number: US-PFIZER INC-2018264003

PATIENT
  Age: 8 Year
  Sex: Female
  Weight: 24.49 kg

DRUGS (4)
  1. PULMICORT TURBUHALER [Concomitant]
     Active Substance: BUDESONIDE
     Dosage: UNK
  2. QUILLICHEW ER [Suspect]
     Active Substance: METHYLPHENIDATE HYDROCHLORIDE
     Indication: ATTENTION DEFICIT/HYPERACTIVITY DISORDER
     Dosage: 20 MG, 2X/DAY (ONE PILL, HALF IN MORNING AND IN THE AFTERNOON)
     Dates: start: 2017, end: 201806
  3. QUILLIVANT XR [Suspect]
     Active Substance: METHYLPHENIDATE HYDROCHLORIDE
     Dosage: 6 ML, DAILY
  4. QUILLIVANT XR [Suspect]
     Active Substance: METHYLPHENIDATE HYDROCHLORIDE
     Indication: ATTENTION DEFICIT/HYPERACTIVITY DISORDER
     Dosage: UNK
     Dates: start: 2017, end: 201806

REACTIONS (10)
  - Autism spectrum disorder [Unknown]
  - Tic [Unknown]
  - Drug screen false positive [Unknown]
  - Anxiety [Recovering/Resolving]
  - Bruxism [Recovering/Resolving]
  - Fear [Recovering/Resolving]
  - Communication disorder [Recovering/Resolving]
  - Weight decreased [Recovered/Resolved]
  - Insomnia [Unknown]
  - Anger [Recovered/Resolved]

NARRATIVE: CASE EVENT DATE: 201708
